FAERS Safety Report 8379828-1 (Version None)
Quarter: 2012Q1

REPORT INFORMATION
  Report Type: 
  Country: None (occurrence: None)
  Receive Date: 20120323
  Receipt Date: 20110414
  Transmission Date: 20120608
  Serious: Yes (Hospitalization, Other)
  Sender: FDA-Public Use
  Company Number: 163-21880-11041804

PATIENT
  Age: 73 Year
  Sex: Male
  Weight: 107.9561 kg

DRUGS (13)
  1. OMEGA-3 (OMEGA-3 TRIGLYCERIDES) (CAPSULES) [Concomitant]
  2. ADALAT CC (NIFEDIPINE) (TABLETS) [Concomitant]
  3. MELATONIN (MELATONIN) (TABLETS) [Concomitant]
  4. PRINIVIL [Concomitant]
  5. SIMVASTATIN [Concomitant]
  6. ATENOLOL [Concomitant]
  7. PROZAC (FLUOXETINE HYDROCHLORIDE) (CAPSULES) [Concomitant]
  8. TYLENOL PM (TYLENOL PM) (TABLETS) [Concomitant]
  9. PRILOSEC (OMEPRAZOLE) (CAPSULES) [Concomitant]
  10. REVLIMID [Suspect]
     Indication: MULTIPLE MYELOMA
     Dosage: 10 MG, 1 IN 1 D, PO
     Route: 048
     Dates: start: 20110201
  11. BENADRYL (CLONALIN) (TABLETS) [Concomitant]
  12. HYDROCODONE-ACETAMINOPHEN (PROCET /USA/) (TABLETS) [Concomitant]
  13. NAPROXEN (NAPROXEN) (TABLETS) [Concomitant]

REACTIONS (2)
  - BACK PAIN [None]
  - PULMONARY OEDEMA [None]
